FAERS Safety Report 7141834-2 (Version None)
Quarter: 2010Q4

REPORT INFORMATION
  Report Type: 
  Country: None (occurrence: None)
  Receive Date: 20101202
  Receipt Date: 20101202
  Transmission Date: 20110411
  Serious: Yes (Other)
  Sender: FDA-Public Use
  Company Number: None

PATIENT
  Age: 30 Year
  Sex: Female
  Weight: 63.6 kg

DRUGS (4)
  1. SULFAMETHOXAZOLE AND TRIMETHOPRIM [Suspect]
     Indication: BRONCHITIS
     Dosage: ONE TABLET TWICE DAILY 047 ORAL
     Route: 048
     Dates: start: 20101101, end: 20101108
  2. SULFAMETHOXAZOLE AND TRIMETHOPRIM [Suspect]
     Indication: SINUSITIS
     Dosage: ONE TABLET TWICE DAILY 047 ORAL
     Route: 048
     Dates: start: 20101101, end: 20101108
  3. SYNTHROID [Concomitant]
  4. TRI-SPRINTEC [Concomitant]

REACTIONS (3)
  - PRURITUS [None]
  - RASH [None]
  - URTICARIA [None]
